FAERS Safety Report 25642252 (Version 1)
Quarter: 2025Q3

REPORT INFORMATION
  Report Type: Spontaneous
  Country: US (occurrence: US)
  Receive Date: 20250805
  Receipt Date: 20250805
  Transmission Date: 20251020
  Serious: Yes (Hospitalization)
  Sender: SPECGX
  Company Number: US-SPECGX-T202501281

PATIENT
  Age: 42 Year
  Sex: Male

DRUGS (21)
  1. DEXTROAMPHETAMINE SACCHARATE, AMPHETAMINE ASPARTATE, DEXTROAMPHETAMINE [Interacting]
     Active Substance: AMPHETAMINE ASPARTATE\AMPHETAMINE SULFATE\DEXTROAMPHETAMINE SACCHARATE\DEXTROAMPHETAMINE SULFATE
     Indication: Product used for unknown indication
     Dosage: 20 MILLIGRAM, QD
     Route: 065
  2. PAMELOR [Suspect]
     Active Substance: NORTRIPTYLINE HYDROCHLORIDE
     Indication: Product used for unknown indication
     Dosage: 100 MILLIGRAM, QHS
     Route: 065
  3. PAMELOR [Suspect]
     Active Substance: NORTRIPTYLINE HYDROCHLORIDE
     Dosage: 50 MILLIGRAM, QD
     Route: 065
  4. PSILOCYBIN [Interacting]
     Active Substance: PSILOCYBIN
     Indication: Depression
     Route: 065
  5. PSILOCYBIN [Interacting]
     Active Substance: PSILOCYBIN
     Route: 065
  6. PHENELZINE [Interacting]
     Active Substance: PHENELZINE
     Indication: Product used for unknown indication
     Dosage: 45 MILLIGRAM, BID
     Route: 065
  7. ATORVASTATIN [Suspect]
     Active Substance: ATORVASTATIN
     Indication: Product used for unknown indication
     Dosage: 80 MILLIGRAM, QD
     Route: 065
  8. FENOFIBRATE [Suspect]
     Active Substance: FENOFIBRATE
     Indication: Product used for unknown indication
     Dosage: 160 MILLIGRAM, QD
     Route: 065
  9. GLIPIZIDE [Suspect]
     Active Substance: GLIPIZIDE
     Indication: Product used for unknown indication
     Dosage: 10 MILLIGRAM, BID
     Route: 065
  10. LIRAGLUTIDE [Suspect]
     Active Substance: LIRAGLUTIDE
     Indication: Product used for unknown indication
     Dosage: 0.6 MILLIGRAM, QD
     Route: 058
  11. METFORMIN [Suspect]
     Active Substance: METFORMIN HYDROCHLORIDE
     Indication: Product used for unknown indication
     Dosage: 500 MILLIGRAM, BID
     Route: 065
  12. OMEPRAZOLE [Suspect]
     Active Substance: OMEPRAZOLE
     Indication: Product used for unknown indication
     Dosage: 40 MILLIGRAM, QD
     Route: 065
  13. PROPRANOLOL [Suspect]
     Active Substance: PROPRANOLOL HYDROCHLORIDE
     Indication: Product used for unknown indication
     Dosage: 20 MILLIGRAM, TID
     Route: 065
  14. VALPROATE [Suspect]
     Active Substance: VALPROIC ACID
     Indication: Product used for unknown indication
     Dosage: 2000 MILLIGRAM, QHS
     Route: 065
  15. ZOLPIDEM [Suspect]
     Active Substance: ZOLPIDEM TARTRATE
     Indication: Product used for unknown indication
     Dosage: 10 MILLIGRAM, QHS
     Route: 065
  16. LITHIUM [Suspect]
     Active Substance: LITHIUM
     Indication: Product used for unknown indication
     Dosage: 20 MILLIGRAM, BID
     Route: 065
  17. TRANYLCYPROMINE [Interacting]
     Active Substance: TRANYLCYPROMINE
     Indication: Depression
     Dosage: 10 MILLIGRAM, BID
     Route: 065
  18. TRANYLCYPROMINE [Interacting]
     Active Substance: TRANYLCYPROMINE
     Route: 065
  19. TRANYLCYPROMINE [Interacting]
     Active Substance: TRANYLCYPROMINE
     Route: 065
  20. TRANYLCYPROMINE [Interacting]
     Active Substance: TRANYLCYPROMINE
     Route: 065
  21. SELEGILINE [Interacting]
     Active Substance: SELEGILINE
     Indication: Product used for unknown indication
     Route: 065

REACTIONS (4)
  - Acute myocardial infarction [Recovered/Resolved]
  - Hypertensive emergency [Recovered/Resolved]
  - Substance use [Unknown]
  - Drug interaction [Unknown]
